FAERS Safety Report 14147266 (Version 2)
Quarter: 2017Q4

REPORT INFORMATION
  Report Type: Report from Study
  Country: ES (occurrence: ES)
  Receive Date: 20171101
  Receipt Date: 20171220
  Transmission Date: 20180321
  Serious: Yes (Hospitalization)
  Sender: FDA-Public Use
  Company Number: ES-ROCHE-2015864

PATIENT
  Age: 61 Year
  Sex: Male
  Weight: 81.8 kg

DRUGS (8)
  1. EUTIROX [Concomitant]
     Active Substance: LEVOTHYROXINE SODIUM
     Route: 065
     Dates: start: 20170622
  2. ATROVENT [Concomitant]
     Active Substance: IPRATROPIUM BROMIDE
     Route: 065
  3. IBUPROFEN. [Concomitant]
     Active Substance: IBUPROFEN
     Route: 065
  4. DULOXETINA [Concomitant]
     Active Substance: DULOXETINE
     Route: 065
  5. ZALDIAR [Concomitant]
     Active Substance: ACETAMINOPHEN\TRAMADOL HYDROCHLORIDE
     Route: 065
  6. ATEZOLIZUMAB. [Suspect]
     Active Substance: ATEZOLIZUMAB
     Indication: NEOPLASM
     Dosage: DATE OF LAST DOSE PRIOR TO SAE: 14/SEP/2017 (CYCLE 2).?-DISCONTINUED AFTER CYCLE 2 DUE TO PROGRESSIV
     Route: 042
     Dates: start: 20170817
  7. RO 5509554 (CSF-1R MAB) [Suspect]
     Active Substance: EMACTUZUMAB
     Indication: NEOPLASM
     Dosage: DATE OF LAST DOSE PRIOR TO SAE: 14/SEP/2017 (CYCLE 2).?-DISCONTINUED AFTER CYCLE 2 DUE TO PROGRESSIV
     Route: 042
     Dates: start: 20170817
  8. PARACETAMOL [Concomitant]
     Active Substance: ACETAMINOPHEN
     Route: 065
     Dates: start: 20170819

REACTIONS (3)
  - Urinary tract obstruction [Recovered/Resolved]
  - Nephritis [Recovered/Resolved]
  - Renal failure [Recovered/Resolved]

NARRATIVE: CASE EVENT DATE: 20171025
